FAERS Safety Report 8016498-6 (Version None)
Quarter: 2011Q4

REPORT INFORMATION
  Report Type: 
  Country: None (occurrence: None)
  Receive Date: 20111230
  Receipt Date: 20111222
  Transmission Date: 20120403
  Serious: Yes (Death, Life-Threatening)
  Sender: FDA-Public Use
  Company Number: JP-GENZYME-THYM-1002144

PATIENT
  Sex: Male
  Weight: 15 kg

DRUGS (77)
  1. MIDAZOLAM [Concomitant]
     Indication: PRODUCT USED FOR UNKNOWN INDICATION
     Dosage: 2 ML, QD
     Dates: start: 20090511, end: 20090511
  2. CLARITHROMYCIN [Concomitant]
     Dosage: 100 MG, QD
     Dates: start: 20090523, end: 20090606
  3. TACROLIMUS [Concomitant]
     Dosage: 0.6 MG, QD
     Dates: start: 20090522, end: 20090525
  4. PREDNISOLONE VALEROACETATE [Concomitant]
     Indication: PRODUCT USED FOR UNKNOWN INDICATION
     Dosage: 10 G, UNK
     Dates: start: 20090610, end: 20090610
  5. HEPARIN [Concomitant]
     Dosage: 10 ML, QD
     Dates: start: 20090622, end: 20090622
  6. CYCLOPHOSPHAMIDE [Concomitant]
     Indication: PRODUCT USED FOR UNKNOWN INDICATION
     Dosage: 520 MG, QD
     Dates: start: 20090515, end: 20090518
  7. MELPHALAN HYDROCHLORIDE [Concomitant]
     Indication: PRODUCT USED FOR UNKNOWN INDICATION
     Dosage: 60 MG, QD
     Dates: start: 20090519, end: 20090519
  8. PREDNISOLONE SODIUM SUCCINATE INJ [Concomitant]
     Dosage: 1.8 MG, QD
     Dates: start: 20090616, end: 20090616
  9. FLOMOXEF SODIUM [Concomitant]
     Indication: PRODUCT USED FOR UNKNOWN INDICATION
     Dosage: 1.5 G, QD
     Dates: start: 20090521, end: 20090605
  10. TOTAL BODY IRRADIATION [Concomitant]
     Indication: PRODUCT USED FOR UNKNOWN INDICATION
     Dosage: UNK
     Dates: start: 20090519, end: 20090520
  11. PREDNISOLONE [Concomitant]
     Dosage: UNK
     Dates: start: 20090617, end: 20090630
  12. TEPRENONE [Concomitant]
     Dosage: UNK
     Dates: start: 20090520, end: 20090522
  13. FLUOROMETHOLONE [Concomitant]
     Indication: PRODUCT USED FOR UNKNOWN INDICATION
     Dosage: UNK
     Dates: start: 20090608, end: 20090608
  14. SULFAMETHOPRIM [Concomitant]
     Indication: PRODUCT USED FOR UNKNOWN INDICATION
     Dosage: UNK
     Dates: start: 20090624, end: 20090625
  15. LIDOCAINE [Concomitant]
     Indication: PRODUCT USED FOR UNKNOWN INDICATION
     Dosage: 10 ML, QD
     Dates: start: 20090511, end: 20090511
  16. HEPARIN [Concomitant]
     Dosage: 10 ML, QD
     Dates: start: 20090617, end: 20090617
  17. HEPARIN [Concomitant]
     Dosage: 10 ML, QD
     Dates: start: 20090630, end: 20090630
  18. FLUDARABINE PHOSPHATE [Concomitant]
     Indication: PRIMARY IMMUNODEFICIENCY SYNDROME
     Dosage: 20 MG, QD
     Dates: start: 20090513, end: 20090518
  19. PREDNISOLONE SODIUM SUCCINATE INJ [Concomitant]
     Indication: PRODUCT USED FOR UNKNOWN INDICATION
     Dosage: 2 MG, QD
     Dates: start: 20090520, end: 20090520
  20. THYMOGLOBULIN [Suspect]
     Dosage: 40 MG, QD
     Route: 042
     Dates: start: 20090513, end: 20090514
  21. HEPARIN [Concomitant]
     Indication: PRODUCT USED FOR UNKNOWN INDICATION
     Dosage: UNK
     Dates: start: 20090514, end: 20090514
  22. TACROLIMUS [Concomitant]
     Dosage: 0.3 MG, QD
     Dates: start: 20090520, end: 20090521
  23. LIDOCAINE [Concomitant]
     Dosage: 10 ML, QD
     Dates: start: 20090625, end: 20090625
  24. RAMOSETRON HYDROCHLORIDE [Concomitant]
     Dosage: 0.3 MG, QD
     Dates: start: 20090520, end: 20090520
  25. PREDNISOLONE SODIUM SUCCINATE INJ [Concomitant]
     Dosage: 2.5 MG, QD
     Dates: start: 20090524, end: 20090526
  26. PREDNISOLONE SODIUM SUCCINATE INJ [Concomitant]
     Dosage: 0.8 MG, QD
     Dates: start: 20090616, end: 20090616
  27. METHOTREXATE [Concomitant]
     Dosage: 6.5 MG, QD
     Dates: start: 20090601, end: 20090601
  28. MIXED AMINO ACID CARBOHYDRATE ELECTROLYTE VITAMIN COMBINED DRUG [Concomitant]
     Indication: PRODUCT USED FOR UNKNOWN INDICATION
     Dosage: 1103 ML, QD
     Dates: start: 20090524, end: 20090617
  29. PREDNISOLONE [Concomitant]
     Dosage: UNK
     Dates: start: 20090520, end: 20090522
  30. SODIUM PICOSULFATE [Concomitant]
     Indication: PRODUCT USED FOR UNKNOWN INDICATION
     Dosage: 10 ML, UNK
     Dates: start: 20090515, end: 20090515
  31. WHITE PETROLEUM [Concomitant]
     Indication: PRODUCT USED FOR UNKNOWN INDICATION
     Dosage: 50 G, UNK
     Dates: start: 20090609, end: 20090609
  32. GRANISETRON HCL [Concomitant]
     Indication: PRODUCT USED FOR UNKNOWN INDICATION
     Dosage: 2 MG, QD
     Dates: start: 20090513, end: 20090520
  33. CYCLOPHOSPHAMIDE [Concomitant]
     Dosage: 20 MG, QD
     Dates: start: 20090515, end: 20090518
  34. RAMOSETRON HYDROCHLORIDE [Concomitant]
     Dosage: 60 MG, QD
     Dates: start: 20090825
  35. MEROPENEM [Concomitant]
     Indication: PRODUCT USED FOR UNKNOWN INDICATION
     Dosage: 0.6 G, QD
     Dates: start: 20090606, end: 20090606
  36. PREDNISOLONE [Concomitant]
     Indication: PRODUCT USED FOR UNKNOWN INDICATION
     Dosage: UNK
     Dates: start: 20090511, end: 20090513
  37. PREDNISOLONE [Concomitant]
     Dosage: UNK
     Dates: start: 20090516, end: 20090517
  38. TEPRENONE [Concomitant]
     Dosage: UNK
     Dates: start: 20090516, end: 20090517
  39. MIDAZOLAM [Concomitant]
     Dosage: 10 MG, QD
     Dates: start: 20090625, end: 20090625
  40. CLARITHROMYCIN [Concomitant]
     Indication: PRODUCT USED FOR UNKNOWN INDICATION
     Dosage: 100 MG, QD
     Dates: start: 20090512, end: 20090512
  41. CLARITHROMYCIN [Concomitant]
     Dosage: 200 MG, QD
     Dates: start: 20090513, end: 20090513
  42. CLARITHROMYCIN [Concomitant]
     Dosage: 100 MG, QD
     Dates: start: 20090514, end: 20090517
  43. CANDESARTAN CILEXETIL [Concomitant]
     Indication: PRODUCT USED FOR UNKNOWN INDICATION
     Dosage: UNK
     Dates: start: 20090520, end: 20090630
  44. TACROLIMUS [Concomitant]
     Indication: PROPHYLAXIS AGAINST GRAFT VERSUS HOST DISEASE
     Dosage: 10 G, UNK
     Dates: start: 20090608, end: 20090608
  45. TACROLIMUS [Concomitant]
     Dosage: 0.4 MG, QD
     Dates: start: 20090526, end: 20090615
  46. HEPARIN [Concomitant]
     Indication: PROPHYLAXIS
     Dosage: 10 ML, QD
     Dates: start: 20090511, end: 20090511
  47. HEPARIN [Concomitant]
     Dosage: 20 ML, QD
     Dates: start: 20090625, end: 20090625
  48. PREDNISOLONE SODIUM SUCCINATE INJ [Concomitant]
     Dosage: 2 MG, QD
     Dates: start: 20090609, end: 20090615
  49. FLOMOXEF SODIUM [Concomitant]
     Dosage: 1 G, QD
     Dates: start: 20090521, end: 20090606
  50. METHOTREXATE [Concomitant]
     Indication: PROPHYLAXIS AGAINST GRAFT VERSUS HOST DISEASE
     Dosage: 10 MG, QD
     Dates: start: 20090522, end: 20090522
  51. MIDAZOLAM [Concomitant]
     Dosage: 2.5 ML, QD
     Dates: start: 20090511, end: 20090511
  52. URSODIOL [Concomitant]
     Indication: PROPHYLAXIS
     Dosage: UNK
     Dates: start: 20090513, end: 20090626
  53. TACROLIMUS [Concomitant]
     Dosage: UNK
     Dates: start: 20090615, end: 20090630
  54. DIFLUPREDNATE [Concomitant]
     Indication: PRODUCT USED FOR UNKNOWN INDICATION
     Dosage: 10 G, UNK
     Dates: start: 20090608, end: 20090608
  55. MESNA [Concomitant]
     Indication: PRODUCT USED FOR UNKNOWN INDICATION
     Dosage: 600 MG, QD
     Dates: start: 20090515, end: 20090518
  56. PREDNISOLONE SODIUM SUCCINATE INJ [Concomitant]
     Dosage: 3 MG, QD
     Dates: start: 20090521, end: 20090523
  57. PREDNISOLONE SODIUM SUCCINATE INJ [Concomitant]
     Dosage: 2 MG, QD
     Dates: start: 20090527, end: 20090602
  58. PREDNISOLONE SODIUM SUCCINATE INJ [Concomitant]
     Dosage: 1.5 MG, QD
     Dates: start: 20090603, end: 20090607
  59. HAPTOGLOBINS [Concomitant]
     Indication: PRODUCT USED FOR UNKNOWN INDICATION
     Dosage: UNK
     Dates: start: 20090521, end: 20090521
  60. METOCLOPRAMIDE [Concomitant]
     Indication: PROPHYLAXIS AGAINST GRAFT VERSUS HOST DISEASE
     Dosage: 3 MG, QD
     Dates: start: 20090523, end: 20090526
  61. MEROPENEM [Concomitant]
     Dosage: 0.9 G, QD
     Dates: start: 20090607, end: 20090611
  62. ITRACONAZOLE [Concomitant]
     Indication: PRODUCT USED FOR UNKNOWN INDICATION
     Dosage: 7 ML, QD
     Dates: start: 20090615, end: 20090630
  63. CEFAZOLIN [Concomitant]
     Indication: PRODUCT USED FOR UNKNOWN INDICATION
     Dosage: UNK
     Dates: start: 20090512, end: 20090512
  64. CHLORPHENIRAMINE MALEATE [Concomitant]
     Indication: PREMEDICATION
     Dosage: 2.5 MG, UNK
     Dates: start: 20090513, end: 20090515
  65. RAMOSETRON HYDROCHLORIDE [Concomitant]
     Indication: PRODUCT USED FOR UNKNOWN INDICATION
     Dosage: 0.15 MG, QD
     Dates: start: 20090518, end: 20090518
  66. MICAFUNGIN SODIUM [Concomitant]
     Indication: PRODUCT USED FOR UNKNOWN INDICATION
     Dosage: 25 MG, QD
     Dates: start: 20090521, end: 20090615
  67. METHOTREXATE [Concomitant]
     Dosage: 6.5 MG, QD
     Dates: start: 20090527, end: 20090527
  68. ACYCLOVIR [Concomitant]
     Indication: PROPHYLAXIS
     Dosage: 150 MG, BID
     Dates: start: 20090522, end: 20090615
  69. LENOGRASTIM [Concomitant]
     Indication: PRODUCT USED FOR UNKNOWN INDICATION
     Dosage: 100 MCG, QD
     Dates: start: 20090526, end: 20090613
  70. TEPRENONE [Concomitant]
     Indication: PRODUCT USED FOR UNKNOWN INDICATION
     Dosage: UNK
     Dates: start: 20090511, end: 20090513
  71. AMBROXOL [Concomitant]
     Indication: PRODUCT USED FOR UNKNOWN INDICATION
     Dosage: UNK
     Dates: start: 20090512, end: 20090630
  72. CLARITHROMYCIN [Concomitant]
     Dosage: 200 MG, QD
     Dates: start: 20090518, end: 20090522
  73. HEPARIN [Concomitant]
     Dosage: 2.25 ML, QD
     Dates: start: 20090512, end: 20090617
  74. METHYLPREDNISOLONE SODIUM SUCCINATE [Concomitant]
     Indication: PREMEDICATION
     Dosage: 15 MG, QD
     Dates: start: 20090513, end: 20090515
  75. PREDNISOLONE SODIUM SUCCINATE INJ [Concomitant]
     Dosage: 2.15 MG, QD
     Dates: start: 20090608, end: 20090608
  76. METHOTREXATE [Concomitant]
     Dosage: 6.5 MG, QD
     Dates: start: 20090524, end: 20090524
  77. MANGANESE CHLORIDE ZINC SULFATE COMBINED DRUG [Concomitant]
     Indication: PRODUCT USED FOR UNKNOWN INDICATION
     Dosage: 1 ML, QD
     Dates: start: 20090524, end: 20090617

REACTIONS (3)
  - IDIOPATHIC THROMBOCYTOPENIC PURPURA [None]
  - CEREBRAL HAEMORRHAGE [None]
  - HAEMOLYTIC ANAEMIA [None]
